FAERS Safety Report 9126900 (Version 2)
Quarter: 2013Q1

REPORT INFORMATION
  Report Type: Spontaneous
  Country: US (occurrence: US)
  Receive Date: 20130228
  Receipt Date: 20130308
  Transmission Date: 20140127
  Serious: Yes (Hospitalization, Other)
  Sender: FDA-Public Use
  Company Number: US-BRISTOL-MYERS SQUIBB COMPANY-17400888

PATIENT
  Age: 49 Year
  Sex: Male
  Weight: 107.48 kg

DRUGS (1)
  1. ABATACEPT SUBQ INJECTION 125MG/ML [Suspect]
     Indication: RHEUMATOID ARTHRITIS
     Dosage: DATE OF LAST INJ:2FEB2013
     Route: 058
     Dates: start: 201111

REACTIONS (3)
  - Pleural effusion [Not Recovered/Not Resolved]
  - Alveolitis allergic [Unknown]
  - Drug ineffective [Unknown]
